FAERS Safety Report 4364584-4 (Version None)
Quarter: 2004Q2

REPORT INFORMATION
  Report Type: 
  Country: None (occurrence: None)
  Receive Date: 20040525
  Receipt Date: 20040510
  Transmission Date: 20050107
  Serious: Yes (Other)
  Sender: FDA-Public Use
  Company Number: WAES 0403USA02588

PATIENT
  Age: 72 Year
  Sex: Female

DRUGS (5)
  1. HYDRODIURIL [Suspect]
     Indication: ESSENTIAL HYPERTENSION
     Dosage: PO
     Route: 048
  2. OLMESARTAN MEDOXOMIL [Suspect]
     Indication: ESSENTIAL HYPERTENSION
     Dosage: 10 MG PO
     Route: 048
  3. ALBUMIN TANNATE [Concomitant]
  4. ASPIRIN ALUMINUM [Concomitant]
  5. BIFIDOBACTERIUM BIFIDUM (AS DRUG) [Concomitant]

REACTIONS (3)
  - DIZZINESS [None]
  - SHOCK [None]
  - VERTEBROBASILAR INSUFFICIENCY [None]
